FAERS Safety Report 9938513 (Version 2)
Quarter: 2014Q1

REPORT INFORMATION
  Report Type: Report from Study
  Country: US (occurrence: US)
  Receive Date: 20140303
  Receipt Date: 20140303
  Transmission Date: 20141002
  Serious: No
  Sender: FDA-Public Use
  Company Number: US-ABBVIE-12P-163-1022647-00

PATIENT
  Age: 36 Year
  Sex: Female

DRUGS (7)
  1. HUMIRA [Suspect]
     Indication: CROHN^S DISEASE
     Route: 058
     Dates: start: 20121213
  2. HUMIRA [Suspect]
     Route: 058
  3. PENTASA [Concomitant]
     Indication: CROHN^S DISEASE
     Dosage: 500 MG TWO TABS TWICE A DAY
  4. PREDNISONE [Concomitant]
     Indication: PRODUCT USED FOR UNKNOWN INDICATION
  5. XYZAL [Concomitant]
     Indication: HYPERSENSITIVITY
  6. SYNTHROID [Concomitant]
     Indication: AUTOIMMUNE THYROIDITIS
  7. SYNTHROID [Concomitant]
     Dosage: ON SUNDAYS

REACTIONS (9)
  - Fatigue [Not Recovered/Not Resolved]
  - Injection site bruising [Not Recovered/Not Resolved]
  - Diarrhoea [Not Recovered/Not Resolved]
  - Injection site pain [Not Recovered/Not Resolved]
  - Chills [Not Recovered/Not Resolved]
  - Migraine [Not Recovered/Not Resolved]
  - Chills [Unknown]
  - Feeling hot [Unknown]
  - Musculoskeletal discomfort [Unknown]
